FAERS Safety Report 5840639-X (Version None)
Quarter: 2008Q3

REPORT INFORMATION
  Report Type: 
  Country: None (occurrence: None)
  Receive Date: 20080811
  Receipt Date: 20080801
  Transmission Date: 20090109
  Serious: Yes (Other)
  Sender: FDA-Public Use
  Company Number: PHNU2008DE01301

PATIENT
  Sex: Male

DRUGS (3)
  1. RASILEZ [Suspect]
     Dosage: 300 MG, QD
     Route: 048
     Dates: start: 20080101, end: 20080226
  2. ASPIRIN [Concomitant]
     Route: 048
  3. SIMVASTATIN [Concomitant]
     Dosage: 1 X 20

REACTIONS (2)
  - BLOOD PRESSURE INCREASED [None]
  - RHEUMATOID ARTHRITIS [None]
